FAERS Safety Report 12907736 (Version 5)
Quarter: 2019Q2

REPORT INFORMATION
  Report Type: Report from Study
  Country: US (occurrence: US)
  Receive Date: 20161103
  Receipt Date: 20190621
  Transmission Date: 20190711
  Serious: Yes (Life-Threatening, Hospitalization, Other)
  Sender: FDA-Public Use
  Company Number: US-INDIVIOR LIMITED-INDV-096126-2016

PATIENT
  Sex: Male

DRUGS (1)
  1. SUBOXONE [Suspect]
     Active Substance: BUPRENORPHINE HYDROCHLORIDE\NALOXONE HYDROCHLORIDE
     Dosage: UNK
     Route: 065

REACTIONS (5)
  - Unresponsive to stimuli [Unknown]
  - Respiratory depression [Recovered/Resolved]
  - Accidental exposure to product by child [Recovered/Resolved]
  - Hypotension [Unknown]
  - Apnoea [Unknown]
